FAERS Safety Report 10013552 (Version 1)
Quarter: 2014Q1

REPORT INFORMATION
  Report Type: Report from Study
  Country: US (occurrence: US)
  Receive Date: 20140315
  Receipt Date: 20140315
  Transmission Date: 20141002
  Serious: Yes (Other)
  Sender: FDA-Public Use
  Company Number: US-ROCHE-1359003

PATIENT
  Age: 23 Year
  Sex: Male
  Weight: 66.74 kg

DRUGS (10)
  1. AVASTIN [Suspect]
     Indication: GLIOBLASTOMA
     Dosage: 2 WEEKS
     Route: 042
     Dates: start: 20140103
  2. ZOFRAN [Concomitant]
     Indication: NAUSEA
     Dosage: START DATE: 1 YEAR AGO
     Route: 048
  3. VITAMIN D3 [Concomitant]
  4. RESVERATROL [Concomitant]
  5. FISH OIL [Concomitant]
  6. MELATONIN [Concomitant]
  7. CURCUMIN [Concomitant]
  8. POTASSIUM CHLORIDE [Concomitant]
  9. HYPERICUM [Concomitant]
  10. VITAMIN E [Concomitant]

REACTIONS (4)
  - Visual impairment [Not Recovered/Not Resolved]
  - Weight fluctuation [Unknown]
  - Hypoaesthesia [Not Recovered/Not Resolved]
  - Dysphonia [Not Recovered/Not Resolved]
